FAERS Safety Report 5636434-7 (Version None)
Quarter: 2008Q1

REPORT INFORMATION
  Report Type: 
  Country: None (occurrence: None)
  Receive Date: 20080225
  Receipt Date: 20080125
  Transmission Date: 20080703
  Serious: No
  Sender: FDA-Public Use
  Company Number: A0705484A

PATIENT
  Age: 40 Year
  Sex: Female

DRUGS (2)
  1. VERAMYST [Suspect]
     Indication: SINUSITIS
     Dosage: 1SPR PER DAY
     Route: 045
     Dates: start: 20071108, end: 20071110
  2. ASACOL [Concomitant]

REACTIONS (1)
  - EPISTAXIS [None]
